FAERS Safety Report 20624026 (Version 1)
Quarter: 2022Q1

REPORT INFORMATION
  Report Type: Spontaneous
  Country: AU (occurrence: AU)
  Receive Date: 20220322
  Receipt Date: 20220322
  Transmission Date: 20220423
  Serious: Yes (Other)
  Sender: FDA-Public Use
  Company Number: AU-NOVARTISPH-NVSC2022AU061957

PATIENT
  Age: 50 Year
  Sex: Female

DRUGS (3)
  1. METHOTREXATE [Suspect]
     Active Substance: METHOTREXATE
     Indication: Myositis
     Dosage: UNK
     Route: 065
  2. AZATHIOPRINE [Suspect]
     Active Substance: AZATHIOPRINE
     Indication: Myositis
     Dosage: UNK
     Route: 065
  3. PREDNISONE [Suspect]
     Active Substance: PREDNISONE
     Indication: Myositis
     Dosage: UNK
     Route: 065

REACTIONS (6)
  - Type 2 diabetes mellitus [Unknown]
  - Concomitant disease aggravated [Unknown]
  - Weight increased [Unknown]
  - General physical health deterioration [Unknown]
  - Therapy partial responder [Unknown]
  - Product use in unapproved indication [Unknown]
